FAERS Safety Report 8121666-9 (Version None)
Quarter: 2012Q1

REPORT INFORMATION
  Report Type: 
  Country: None (occurrence: None)
  Receive Date: 20120208
  Receipt Date: 20120206
  Transmission Date: 20120608
  Serious: Yes (Other)
  Sender: FDA-Public Use
  Company Number: US-PFIZER INC-2012032589

PATIENT
  Sex: Female
  Weight: 57.143 kg

DRUGS (7)
  1. NEXIUM [Concomitant]
     Dosage: UNK
  2. METOPROLOL [Concomitant]
     Dosage: UNK
  3. CALCIUM [Concomitant]
     Dosage: UNK
  4. CELEBREX [Suspect]
     Indication: OSTEOARTHRITIS
     Dosage: 100 MG, 2X/DAY
     Route: 048
     Dates: start: 20040101, end: 20120101
  5. LIPITOR [Concomitant]
     Dosage: UNK
  6. ARIXTRA [Concomitant]
     Indication: BLOOD DISORDER
     Dosage: UNK
  7. CLARITIN [Concomitant]
     Indication: HYPERSENSITIVITY
     Dosage: UNK

REACTIONS (2)
  - BREAST CANCER METASTATIC [None]
  - BREAST CANCER FEMALE [None]
